FAERS Safety Report 9596323 (Version 1)
Quarter: 2013Q4

REPORT INFORMATION
  Report Type: Spontaneous
  Country: FR (occurrence: FR)
  Receive Date: 20131004
  Receipt Date: 20131004
  Transmission Date: 20140711
  Serious: Yes (Hospitalization)
  Sender: FDA-Public Use
  Company Number: FR-JNJFOC-20130912957

PATIENT
  Age: 8 Year
  Sex: Female
  Weight: 22 kg

DRUGS (1)
  1. RISPERDALORO [Suspect]
     Indication: AGGRESSION
     Route: 048
     Dates: start: 20130507, end: 20130507

REACTIONS (4)
  - Sense of oppression [Recovered/Resolved]
  - Tachycardia [Recovered/Resolved]
  - Tremor [Recovered/Resolved]
  - Off label use [Unknown]
